FAERS Safety Report 18657333 (Version 1)
Quarter: 2020Q4

REPORT INFORMATION
  Report Type: Spontaneous
  Country: IL (occurrence: IL)
  Receive Date: 20201224
  Receipt Date: 20201224
  Transmission Date: 20210114
  Serious: Yes (Hospitalization, Other)
  Sender: FDA-Public Use
  Company Number: IL-REGENERON PHARMACEUTICALS, INC.-2020-95621

PATIENT

DRUGS (1)
  1. PRALUENT [Suspect]
     Active Substance: ALIROCUMAB
     Indication: PRODUCT USED FOR UNKNOWN INDICATION
     Dosage: UNK UNK, QOW
     Route: 058
     Dates: start: 202007

REACTIONS (9)
  - Hypotension [Recovering/Resolving]
  - Alopecia [Not Recovered/Not Resolved]
  - Diaphragmatic hernia [Recovered/Resolved]
  - Fall [Unknown]
  - Weight decreased [Unknown]
  - Loss of consciousness [Recovering/Resolving]
  - General physical health deterioration [Unknown]
  - COVID-19 [Recovering/Resolving]
  - Condition aggravated [Recovering/Resolving]

NARRATIVE: CASE EVENT DATE: 2020
